FAERS Safety Report 8522853-8 (Version None)
Quarter: 2012Q3

REPORT INFORMATION
  Report Type: 
  Country: None (occurrence: None)
  Receive Date: 20120720
  Receipt Date: 20120711
  Transmission Date: 20120928
  Serious: Yes (Hospitalization)
  Sender: FDA-Public Use
  Company Number: US-BIOGENIDEC-2012BI014253

PATIENT
  Age: 55 Year
  Sex: Female

DRUGS (2)
  1. BACLOFEN [Concomitant]
     Indication: BACK DISORDER
  2. TYSABRI [Suspect]
     Indication: MULTIPLE SCLEROSIS
     Route: 042
     Dates: start: 20110713

REACTIONS (4)
  - COGNITIVE DISORDER [None]
  - FUNGAL INFECTION [None]
  - DRUG DELIVERY DEVICE IMPLANTATION [None]
  - MUSCLE SPASTICITY [None]
